FAERS Safety Report 12630174 (Version 2)
Quarter: 2016Q3

REPORT INFORMATION
  Report Type: Spontaneous
  Country: US (occurrence: US)
  Receive Date: 20160808
  Receipt Date: 20160830
  Transmission Date: 20161109
  Serious: Yes (Other)
  Sender: FDA-Public Use
  Company Number: US-AKORN PHARMACEUTICALS-2016AKN00502

PATIENT
  Age: 27 Year
  Sex: Female

DRUGS (2)
  1. UNSPECIFIED COMBINATION CONTRACEPTIVE [Concomitant]
     Route: 048
  2. MYORISAN [Suspect]
     Active Substance: ISOTRETINOIN
     Dosage: 60 MG, 1X/DAY
     Dates: start: 20160622, end: 20160714

REACTIONS (2)
  - Exposure during pregnancy [Not Recovered/Not Resolved]
  - Vaginal haemorrhage [Recovered/Resolved]

NARRATIVE: CASE EVENT DATE: 2016
